FAERS Safety Report 4638921-7 (Version None)
Quarter: 2005Q2

REPORT INFORMATION
  Report Type: 
  Country: None (occurrence: None)
  Receive Date: 20050419
  Receipt Date: 20050408
  Transmission Date: 20051028
  Serious: Yes (Hospitalization)
  Sender: FDA-Public Use
  Company Number: US-GLAXOSMITHKLINE-A0553367A

PATIENT
  Sex: Female

DRUGS (8)
  1. WELLBUTRIN [Suspect]
     Indication: BIPOLAR DISORDER
     Dosage: 150MG PER DAY
     Route: 048
  2. LOPRESSOR [Concomitant]
  3. COUMADIN [Concomitant]
  4. HCT [Concomitant]
  5. LISINOPRIL [Concomitant]
  6. ASPIRIN [Concomitant]
  7. UNKNOWN MEDICATION [Concomitant]
  8. PROGESTIN INJ [Concomitant]

REACTIONS (2)
  - CARDIOMEGALY [None]
  - HYPERTENSION [None]
